FAERS Safety Report 8167988-7 (Version None)
Quarter: 2012Q1

REPORT INFORMATION
  Report Type: 
  Country: None (occurrence: None)
  Receive Date: 20120227
  Receipt Date: 20120216
  Transmission Date: 20120608
  Serious: Yes (Hospitalization, Other)
  Sender: FDA-Public Use
  Company Number: US-GLAXOSMITHKLINE-B0783532A

PATIENT
  Age: 56 Year
  Sex: Male

DRUGS (2)
  1. CLONAZEPAM [Concomitant]
     Indication: PRODUCT USED FOR UNKNOWN INDICATION
     Dosage: 1MG TWICE PER DAY
     Route: 048
  2. LAMOTRIGINE [Suspect]
     Indication: PRODUCT USED FOR UNKNOWN INDICATION
     Dosage: 200MG THREE TIMES PER DAY
     Route: 048

REACTIONS (28)
  - TOXICITY TO VARIOUS AGENTS [None]
  - INCOHERENT [None]
  - BLOOD CREATINE PHOSPHOKINASE INCREASED [None]
  - ASPARTATE AMINOTRANSFERASE INCREASED [None]
  - ALANINE AMINOTRANSFERASE INCREASED [None]
  - BLOOD ALKALINE PHOSPHATASE INCREASED [None]
  - CLONIC CONVULSION [None]
  - COGNITIVE DISORDER [None]
  - AGITATION [None]
  - MOUTH INJURY [None]
  - FACIAL BONES FRACTURE [None]
  - BLOOD GLUCOSE DECREASED [None]
  - SPEECH DISORDER [None]
  - MUSCLE RIGIDITY [None]
  - POSTICTAL STATE [None]
  - NOSE DEFORMITY [None]
  - PATIENT RESTRAINT [None]
  - RHABDOMYOLYSIS [None]
  - TREATMENT NONCOMPLIANCE [None]
  - OVERDOSE [None]
  - CONFUSIONAL STATE [None]
  - DISORIENTATION [None]
  - MUSCLE SPASTICITY [None]
  - FACE INJURY [None]
  - MENTAL STATUS CHANGES [None]
  - DISTURBANCE IN ATTENTION [None]
  - APHASIA [None]
  - BLOOD SODIUM INCREASED [None]
